FAERS Safety Report 5041041-3 (Version None)
Quarter: 2006Q2

REPORT INFORMATION
  Report Type: 
  Country: None (occurrence: None)
  Receive Date: 20060629
  Receipt Date: 20060629
  Transmission Date: 20061013
  Serious: Yes (Disabling)
  Sender: FDA-Public Use
  Company Number: None

PATIENT
  Age: 7 Month

DRUGS (1)
  1. SYRINGE CAP BAXA CORPORATION [Suspect]

REACTIONS (2)
  - CHOKING [None]
  - MEDICATION ERROR [None]
